FAERS Safety Report 21334073 (Version 2)
Quarter: 2022Q4

REPORT INFORMATION
  Report Type: Spontaneous
  Country: FR (occurrence: FR)
  Receive Date: 20220914
  Receipt Date: 20221213
  Transmission Date: 20230113
  Serious: Yes (Other)
  Sender: FDA-Public Use
  Company Number: FR-GLAXOSMITHKLINE-FR2022EME035371

PATIENT
  Age: 81 Year
  Sex: Male

DRUGS (6)
  1. BELANTAMAB MAFODOTIN [Suspect]
     Active Substance: BELANTAMAB MAFODOTIN
     Indication: Plasma cell myeloma
     Dosage: 2.5 MG/KG
     Route: 042
     Dates: start: 20210225
  2. BELANTAMAB MAFODOTIN [Suspect]
     Active Substance: BELANTAMAB MAFODOTIN
     Dosage: 2.5 MG/KG
     Route: 042
     Dates: start: 20210318
  3. BELANTAMAB MAFODOTIN [Suspect]
     Active Substance: BELANTAMAB MAFODOTIN
     Dosage: 2.5 MG/KG
     Route: 042
     Dates: start: 20210408
  4. BELANTAMAB MAFODOTIN [Suspect]
     Active Substance: BELANTAMAB MAFODOTIN
     Dosage: 2.5 MG/KG
     Route: 042
     Dates: start: 20210429
  5. DEXAMETHASONE SODIUM PHOSPHATE [Concomitant]
     Active Substance: DEXAMETHASONE SODIUM PHOSPHATE
     Indication: Product used for unknown indication
     Dosage: 3/DAY
  6. CYCLOSPORINE [Concomitant]
     Active Substance: CYCLOSPORINE
     Indication: Product used for unknown indication
     Dosage: 1% BID

REACTIONS (2)
  - Visual acuity reduced [Recovering/Resolving]
  - Keratopathy [Recovering/Resolving]

NARRATIVE: CASE EVENT DATE: 20210401
